FAERS Safety Report 13932090 (Version 3)
Quarter: 2017Q3

REPORT INFORMATION
  Report Type: Spontaneous
  Country: US (occurrence: US)
  Receive Date: 20170904
  Receipt Date: 20170926
  Transmission Date: 20171127
  Serious: No
  Sender: FDA-Public Use
  Company Number: US-PFIZER INC-2017377484

PATIENT
  Age: 12 Month
  Sex: Female
  Weight: 10 kg

DRUGS (4)
  1. RAPAMUNE [Suspect]
     Active Substance: SIROLIMUS
     Dosage: 0.6 MG, 2X/DAY
     Route: 048
     Dates: start: 20170813
  2. RAPAMUNE [Suspect]
     Active Substance: SIROLIMUS
     Indication: LYMPHATIC DISORDER
     Dosage: 0.5 ML, 2X/DAY
     Route: 048
     Dates: start: 20170813, end: 201708
  3. RAPAMUNE [Suspect]
     Active Substance: SIROLIMUS
     Dosage: 0.7 ML, UNK
     Route: 048
     Dates: start: 201708
  4. SULFAMETHOXAZOLE [Concomitant]
     Active Substance: SULFAMETHOXAZOLE
     Indication: PROPHYLAXIS
     Dosage: 5 ML, 2X/WEEK
     Route: 048
     Dates: start: 20170814

REACTIONS (3)
  - Product use in unapproved indication [Not Recovered/Not Resolved]
  - Drug administered to patient of inappropriate age [Not Recovered/Not Resolved]
  - Oral administration complication [Unknown]

NARRATIVE: CASE EVENT DATE: 20170813
